FAERS Safety Report 9098495 (Version 3)
Quarter: 2013Q2

REPORT INFORMATION
  Report Type: Spontaneous
  Country: US (occurrence: US)
  Receive Date: 20130213
  Receipt Date: 20130426
  Transmission Date: 20140414
  Serious: Yes (Hospitalization, Other)
  Sender: FDA-Public Use
  Company Number: US-PFIZER INC-2013054699

PATIENT
  Age: 36 Year
  Sex: Female
  Weight: 73 kg

DRUGS (8)
  1. EFFEXOR XR [Suspect]
     Indication: ANTIDEPRESSANT THERAPY
     Dosage: 150 MG, 2X/DAY
     Route: 048
     Dates: start: 2009
  2. SEROQUEL [Concomitant]
     Indication: BIPOLAR DISORDER
     Dosage: 800 MG, 3X/DAY
     Dates: start: 2009
  3. SEROQUEL [Concomitant]
     Indication: PERSONALITY DISORDER
  4. CLONAZEPAM [Concomitant]
     Indication: BIPOLAR DISORDER
     Dosage: 3 MG, 1X/DAY
  5. CLONAZEPAM [Concomitant]
     Indication: PERSONALITY DISORDER
  6. NAPROXEN [Concomitant]
     Dosage: 300 MG, 1X/DAY
  7. MIRTAZAPINE [Concomitant]
     Indication: BIPOLAR DISORDER
     Dosage: 30 MG, 1X/DAY
  8. MIRTAZAPINE [Concomitant]
     Indication: PERSONALITY DISORDER

REACTIONS (2)
  - Road traffic accident [Unknown]
  - Ankle fracture [Unknown]
